FAERS Safety Report 17307981 (Version 1)
Quarter: 2020Q1

REPORT INFORMATION
  Report Type: Spontaneous
  Country: US (occurrence: US)
  Receive Date: 20200122
  Receipt Date: 20200122
  Transmission Date: 20200409
  Serious: Yes (Hospitalization)
  Sender: FDA-Public Use
  Company Number: None

PATIENT
  Age: 71 Year
  Sex: Male

DRUGS (5)
  1. AMLODIPINE [Concomitant]
     Active Substance: AMLODIPINE BESYLATE
  2. AZITHROMYCIN ANHYDROUS. [Concomitant]
     Active Substance: AZITHROMYCIN ANHYDROUS
  3. ENVARSUS XR [Suspect]
     Active Substance: TACROLIMUS
     Indication: ESSENTIAL HYPERTENSION
     Route: 048
     Dates: start: 20190528
  4. ENVARSUS XR [Suspect]
     Active Substance: TACROLIMUS
     Indication: ESSENTIAL HYPERTENSION
     Route: 048
     Dates: start: 20190528
  5. PREDNISONE. [Concomitant]
     Active Substance: PREDNISONE

REACTIONS (2)
  - Product dose omission [None]
  - Hospitalisation [None]

NARRATIVE: CASE EVENT DATE: 20200119
